FAERS Safety Report 13124932 (Version 1)
Quarter: 2017Q1

REPORT INFORMATION
  Report Type: Spontaneous
  Country: US (occurrence: US)
  Receive Date: 20170117
  Receipt Date: 20170117
  Transmission Date: 20170428
  Serious: Yes (Hospitalization)
  Sender: FDA-Public Use
  Company Number: None

PATIENT
  Age: 53 Year
  Sex: Female

DRUGS (24)
  1. LASIX [Concomitant]
     Active Substance: FUROSEMIDE
  2. PHENEGRAN [Concomitant]
  3. ULTRAM [Concomitant]
     Active Substance: TRAMADOL HYDROCHLORIDE
  4. CARAFATE [Concomitant]
     Active Substance: SUCRALFATE
  5. PERCOCET [Concomitant]
     Active Substance: ACETAMINOPHEN\OXYCODONE HYDROCHLORIDE
  6. IMODIUM [Concomitant]
     Active Substance: LOPERAMIDE HYDROCHLORIDE
  7. RISPERIDONE. [Concomitant]
     Active Substance: RISPERIDONE
  8. TESSALON [Concomitant]
     Active Substance: BENZONATATE
  9. DITROPAN [Concomitant]
     Active Substance: OXYBUTYNIN CHLORIDE
  10. POTASSIUM [Concomitant]
     Active Substance: POTASSIUM
  11. XELODA [Suspect]
     Active Substance: CAPECITABINE
     Route: 048
     Dates: start: 20161130
  12. COLACE [Concomitant]
     Active Substance: DOCUSATE SODIUM
  13. XELODA [Suspect]
     Active Substance: CAPECITABINE
     Route: 048
     Dates: start: 20161130
  14. ZOCOR [Concomitant]
     Active Substance: SIMVASTATIN
  15. ZOFRAN [Concomitant]
     Active Substance: ONDANSETRON HYDROCHLORIDE
  16. ZOLOFT [Concomitant]
     Active Substance: SERTRALINE HYDROCHLORIDE
  17. ZYRTEC [Concomitant]
     Active Substance: CETIRIZINE HYDROCHLORIDE
  18. GLUCOPHAGE [Concomitant]
     Active Substance: METFORMIN HYDROCHLORIDE
  19. TYLEN 8HR [Concomitant]
  20. ALBUTEROL. [Concomitant]
     Active Substance: ALBUTEROL
  21. CEPACOL [Concomitant]
     Active Substance: BENZOCAINE
  22. CHLORASEPTIC SORE THROAT [Concomitant]
     Active Substance: PHENOL
  23. CYCLOBENAZPR [Concomitant]
  24. PROTONIX [Concomitant]
     Active Substance: PANTOPRAZOLE SODIUM

REACTIONS (3)
  - Vertebral column mass [None]
  - Platelet count decreased [None]
  - Therapy cessation [None]

NARRATIVE: CASE EVENT DATE: 20170106
